FAERS Safety Report 7347186-7 (Version None)
Quarter: 2011Q1

REPORT INFORMATION
  Report Type: 
  Country: None (occurrence: None)
  Receive Date: 20110311
  Receipt Date: 20110307
  Transmission Date: 20110831
  Serious: Yes (Other)
  Sender: FDA-Public Use
  Company Number: US-PFIZER INC-2011050522

PATIENT
  Sex: Female

DRUGS (8)
  1. MONTELUKAST SODIUM [Concomitant]
     Indication: HYPERSENSITIVITY
     Dosage: 10 MG, 1X/DAY
     Route: 048
  2. FLUTICASONE [Concomitant]
     Indication: HYPERSENSITIVITY
     Dosage: UNK
     Route: 045
  3. MONTELUKAST SODIUM [Concomitant]
     Indication: ASTHMA
  4. DEPO-PROVERA [Suspect]
     Dosage: 200 MG, EVERY 3 MONTHS
     Route: 030
     Dates: start: 20101116
  5. CITALOPRAM [Concomitant]
     Indication: DEPRESSION
  6. LORATADINE [Concomitant]
     Indication: HYPERSENSITIVITY
     Dosage: 10 MG, 1X/DAY
     Route: 048
  7. CITALOPRAM [Concomitant]
     Indication: MOOD ALTERED
     Dosage: 20 MG, 1X/DAY
     Route: 048
  8. ALBUTEROL SULFATE [Concomitant]
     Indication: ASTHMA
     Dosage: UNK

REACTIONS (2)
  - INJECTION SITE INFECTION [None]
  - POOR QUALITY DRUG ADMINISTERED [None]
